FAERS Safety Report 12201369 (Version 1)
Quarter: 2016Q1

REPORT INFORMATION
  Report Type: Spontaneous
  Country: US (occurrence: US)
  Receive Date: 20160322
  Receipt Date: 20160322
  Transmission Date: 20160526
  Serious: No
  Sender: FDA-Public Use
  Company Number: US-SA-2015SA022645

PATIENT
  Age: 77 Year
  Sex: Female

DRUGS (1)
  1. NASACORT ALLERGY 24HR [Suspect]
     Active Substance: TRIAMCINOLONE ACETONIDE
     Indication: MULTIPLE ALLERGIES
     Route: 065
     Dates: start: 20150211, end: 20150215

REACTIONS (3)
  - Blister [Recovering/Resolving]
  - Lip swelling [Recovering/Resolving]
  - Lip exfoliation [Not Recovered/Not Resolved]

NARRATIVE: CASE EVENT DATE: 20150216
